FAERS Safety Report 8283971 (Version 3)
Quarter: 2013Q4

REPORT INFORMATION
  Report Type: Spontaneous
  Country: US (occurrence: None)
  Receive Date: 20111122
  Receipt Date: 20131226
  Transmission Date: 20140711
  Serious: No
  Sender: FDA-Public Use
  Company Number: PHHY2011US66711

PATIENT
  Age: 51 Year
  Sex: Female
  Weight: 90.7 kg

DRUGS (10)
  1. GILENYA [Suspect]
     Dosage: 0.5 MG, EVERY DAY, ORAL, 0.5 MG, QOD, ORAL, 0.5 MG, DAILY, ORAL
     Route: 048
  2. SIMVASTATIN [Concomitant]
  3. LISINOPRIL (LISINOPRIL) [Concomitant]
  4. TIZANIDINE HYDROCHLORIDE [Concomitant]
  5. BACLOFEN [Concomitant]
  6. CALCIUM CARBONATE [Concomitant]
  7. VITAMIN D3 (COLECALCIFEROL) [Concomitant]
  8. VITAMINS NOS [Concomitant]
  9. METHYLPHENIDATE [Concomitant]
  10. ZOLPIDEM [Concomitant]

REACTIONS (3)
  - Medication error [None]
  - Chest discomfort [None]
  - Inappropriate schedule of drug administration [None]
